FAERS Safety Report 9133073 (Version 1)
Quarter: 2013Q1

REPORT INFORMATION
  Report Type: Spontaneous
  Country: US (occurrence: US)
  Receive Date: 20130116
  Receipt Date: 20130116
  Transmission Date: 20140127
  Serious: No
  Sender: FDA-Public Use
  Company Number: US-TEVA-379352USA

PATIENT
  Age: 68 Year
  Sex: Female

DRUGS (11)
  1. TREANDA [Suspect]
     Indication: CHRONIC LYMPHOCYTIC LEUKAEMIA
     Dosage: 25MGS/5ML
  2. B-12 [Concomitant]
     Indication: HYPOVITAMINOSIS
  3. MEGASE [Concomitant]
  4. NORTRIPTYLINE [Concomitant]
  5. TENORMIN [Concomitant]
  6. XANAX [Concomitant]
  7. DICLOFINAC [Concomitant]
  8. BENTYL [Concomitant]
  9. POTASSIUM [Concomitant]
  10. PEPCID [Concomitant]
  11. ALLOPURINOL [Concomitant]

REACTIONS (1)
  - Rash pruritic [Recovered/Resolved]
